FAERS Safety Report 21356566 (Version 2)
Quarter: 2022Q3

REPORT INFORMATION
  Report Type: Spontaneous
  Country: FR (occurrence: FR)
  Receive Date: 20220920
  Receipt Date: 20220926
  Transmission Date: 20221026
  Serious: Yes (Congenital Anomaly)
  Sender: FDA-Public Use
  Company Number: None

PATIENT
  Age: 0 Year
  Sex: Female

DRUGS (7)
  1. TYSABRI [Suspect]
     Active Substance: NATALIZUMAB
     Indication: Multiple sclerosis
     Route: 050
     Dates: start: 201811, end: 20220415
  2. TYSABRI [Suspect]
     Active Substance: NATALIZUMAB
     Route: 050
     Dates: start: 20211108, end: 20220415
  3. NEURONTIN [Suspect]
     Active Substance: GABAPENTIN
     Indication: Multiple sclerosis
     Route: 050
     Dates: end: 202201
  4. EBASTINE [Suspect]
     Active Substance: EBASTINE
     Indication: Hypersensitivity
     Route: 050
     Dates: start: 20210521
  5. EBASTINE [Suspect]
     Active Substance: EBASTINE
     Route: 050
     Dates: start: 20211108
  6. LYRICA [Suspect]
     Active Substance: PREGABALIN
     Indication: Multiple sclerosis
     Route: 050
     Dates: start: 20211210
  7. EBASTINE [Suspect]
     Active Substance: EBASTINE
     Indication: Hypersensitivity
     Route: 050
     Dates: start: 20211210

REACTIONS (1)
  - Cleft palate [Not Recovered/Not Resolved]

NARRATIVE: CASE EVENT DATE: 20220804
